FAERS Safety Report 8788106 (Version 1)
Quarter: 2012Q4

REPORT INFORMATION
  Report Type: 
  Country: BR (occurrence: BR)
  Receive Date: 20120914
  Receipt Date: 20120914
  Transmission Date: 20130627
  Serious: Yes (Hospitalization)
  Sender: FDA-Public Use
  Company Number: PHHY2012BR078939

PATIENT
  Sex: Male

DRUGS (9)
  1. DIOVAN AMLO [Suspect]
     Indication: HYPERTENSION
     Dosage: 160 mg, daily
     Route: 048
  2. SELOZOK [Suspect]
     Indication: HYPERTENSION
     Dosage: 50 mg, daily
     Route: 048
  3. BRILINTA [Concomitant]
  4. PANTOPRAZOLE [Concomitant]
  5. ATORVASTATIN [Concomitant]
  6. ATENOLOL [Concomitant]
  7. CLONIDINE [Concomitant]
  8. AMLODIPINE [Concomitant]
  9. MOTILIUM [Concomitant]

REACTIONS (2)
  - Venous occlusion [Recovering/Resolving]
  - Treatment noncompliance [None]
